FAERS Safety Report 7070343-4 (Version None)
Quarter: 2010Q4

REPORT INFORMATION
  Report Type: 
  Country: None (occurrence: None)
  Receive Date: 20101028
  Receipt Date: 20101019
  Transmission Date: 20110411
  Serious: No
  Sender: FDA-Public Use
  Company Number: US-WYE-H18262010

PATIENT
  Sex: Female
  Weight: 72.64 kg

DRUGS (4)
  1. PREMARIN [Suspect]
     Indication: VULVOVAGINAL DRYNESS
     Dosage: UNKNOWN DOSE TAKEN TWICE PER WEEK
     Route: 067
  2. PRILOSEC [Concomitant]
  3. PROTONIX [Suspect]
     Indication: GASTROOESOPHAGEAL REFLUX DISEASE
     Route: 048
  4. MOTRIN [Concomitant]

REACTIONS (2)
  - MALAISE [None]
  - URINARY TRACT INFECTION [None]
